FAERS Safety Report 15936423 (Version 2)
Quarter: 2019Q1

REPORT INFORMATION
  Report Type: Spontaneous
  Country: JP (occurrence: JP)
  Receive Date: 20190208
  Receipt Date: 20190320
  Transmission Date: 20190417
  Serious: Yes (Other)
  Sender: FDA-Public Use
  Company Number: JP-GLAXOSMITHKLINE-JP2019JPN020386

PATIENT
  Age: 27 Year
  Sex: Male

DRUGS (1)
  1. ZOVIRAX [Suspect]
     Active Substance: ACYCLOVIR
     Indication: HERPES SIMPLEX ENCEPHALITIS
     Dosage: UNK
     Route: 041

REACTIONS (8)
  - Condition aggravated [Unknown]
  - Disorientation [Recovering/Resolving]
  - Anterograde amnesia [Unknown]
  - Laboratory test abnormal [Unknown]
  - Locked-in syndrome [Unknown]
  - Aphasia [Recovering/Resolving]
  - Hepatic function abnormal [Unknown]
  - Dysgeusia [Recovering/Resolving]
